FAERS Safety Report 11246783 (Version 1)
Quarter: 2015Q3

REPORT INFORMATION
  Report Type: Spontaneous
  Country: US (occurrence: None)
  Receive Date: 20150706
  Receipt Date: 20150706
  Transmission Date: 20151125
  Serious: Yes (Other)
  Sender: FDA-Public Use
  Company Number: None

PATIENT
  Age: 77 Year
  Sex: Female
  Weight: 56.7 kg

DRUGS (11)
  1. BESIVANCE [Suspect]
     Active Substance: BESIFLOXACIN
     Indication: CATARACT OPERATION
     Route: 047
     Dates: start: 20150629, end: 20150702
  2. HCTZ [Concomitant]
     Active Substance: HYDROCHLOROTHIAZIDE
  3. VITAMIN D [Concomitant]
     Active Substance: CHOLECALCIFEROL
  4. CAT^S CLAW [Concomitant]
     Active Substance: CAT^S CLAW
  5. BESIVANCE [Suspect]
     Active Substance: BESIFLOXACIN
     Indication: PREOPERATIVE CARE
     Route: 047
     Dates: start: 20150629, end: 20150702
  6. PINEAPPLE. [Concomitant]
     Active Substance: PINEAPPLE
  7. JUNIPER [Concomitant]
     Active Substance: MENTHOL
  8. GARLIC. [Concomitant]
     Active Substance: GARLIC
  9. NETTLES [Concomitant]
  10. VITAMIN C [Concomitant]
     Active Substance: ASCORBIC ACID
  11. ESTRADIOL PATCH 0.0375MG MYLAN [Concomitant]
     Active Substance: ESTRADIOL

REACTIONS (4)
  - Ocular hyperaemia [None]
  - Eye pain [None]
  - Visual impairment [None]
  - Eye pruritus [None]

NARRATIVE: CASE EVENT DATE: 20150529
